FAERS Safety Report 10060622 (Version 1)
Quarter: 2014Q2

REPORT INFORMATION
  Report Type: Spontaneous
  Country: CA (occurrence: CA)
  Receive Date: 20140404
  Receipt Date: 20140404
  Transmission Date: 20141212
  Serious: Yes (Death)
  Sender: FDA-Public Use
  Company Number: CA-009507513-1404CAN002797

PATIENT
  Age: 78 Year
  Sex: Female
  Weight: 88 kg

DRUGS (3)
  1. FOSAMAX [Suspect]
     Indication: OSTEOPOROSIS
     Dosage: 70 MG, QW
     Route: 065
     Dates: start: 20111118
  2. VITAMIN D (UNSPECIFIED) [Concomitant]
     Indication: OSTEOPOROSIS
     Dosage: 800 IU, QD
     Route: 065
     Dates: start: 1989
  3. CALCIUM (UNSPECIFIED) [Concomitant]
     Indication: OSTEOPOROSIS
     Dosage: 1000 MG, QD
     Route: 065
     Dates: start: 1989

REACTIONS (1)
  - Death [Fatal]
